FAERS Safety Report 18133018 (Version 1)
Quarter: 2020Q3

REPORT INFORMATION
  Report Type: Spontaneous
  Country: DE (occurrence: DE)
  Receive Date: 20200811
  Receipt Date: 20200811
  Transmission Date: 20201103
  Serious: Yes (Hospitalization)
  Sender: FDA-Public Use
  Company Number: DE-TEVA-2020-DE-1812248

PATIENT
  Age: 16 Year
  Sex: Female
  Weight: 77 kg

DRUGS (1)
  1. IBUPROFEN. [Suspect]
     Active Substance: IBUPROFEN
     Indication: SUICIDAL IDEATION
     Dosage: DAILY DOSE: 10400 MG MILLGRAM(S) EVERY DAYS 26 SEPARATED DOSES, UNIT DOSE: 10400MG
     Route: 048
     Dates: start: 20190407

REACTIONS (2)
  - Medication error [Unknown]
  - Intentional overdose [Unknown]

NARRATIVE: CASE EVENT DATE: 20190407
